APPROVED DRUG PRODUCT: TIZANIDINE HYDROCHLORIDE
Active Ingredient: TIZANIDINE HYDROCHLORIDE
Strength: EQ 2MG BASE
Dosage Form/Route: CAPSULE;ORAL
Application: A208622 | Product #001 | TE Code: AB
Applicant: ZYDUS PHARMACEUTICALS USA INC
Approved: Mar 3, 2017 | RLD: No | RS: No | Type: RX